FAERS Safety Report 16891294 (Version 1)
Quarter: 2019Q4

REPORT INFORMATION
  Report Type: Spontaneous
  Country: FR (occurrence: FR)
  Receive Date: 20191007
  Receipt Date: 20191007
  Transmission Date: 20200122
  Serious: Yes (Hospitalization)
  Sender: FDA-Public Use
  Company Number: FR-MYLANLABS-2019M1092097

PATIENT
  Age: 79 Year
  Sex: Male
  Weight: 63.3 kg

DRUGS (8)
  1. ESCITALOPRAM [Suspect]
     Active Substance: ESCITALOPRAM OXALATE
     Indication: ANXIETY
     Dosage: 5 MILLIGRAM, QD
     Route: 048
     Dates: start: 201902
  2. SIMVASTATINE [Concomitant]
     Active Substance: SIMVASTATIN
  3. TRILEPTAL [Concomitant]
     Active Substance: OXCARBAZEPINE
  4. UROREC [Concomitant]
     Active Substance: SILODOSIN
  5. COVERAM [Concomitant]
     Active Substance: AMLODIPINE\PERINDOPRIL
  6. KARDEGIC [Concomitant]
     Active Substance: ASPIRIN DL-LYSINE
  7. LORMETAZEPAM ARROW [Suspect]
     Active Substance: LORMETAZEPAM
     Indication: ANXIETY
     Dosage: 1 DOSAGE FORM, QD
     Route: 048
     Dates: start: 20190418, end: 20190421
  8. GABAPENTINE [Concomitant]
     Active Substance: GABAPENTIN

REACTIONS (1)
  - Epilepsy [Recovered/Resolved]

NARRATIVE: CASE EVENT DATE: 20190421
